FAERS Safety Report 20092286 (Version 1)
Quarter: 2021Q4

REPORT INFORMATION
  Report Type: Spontaneous
  Country: NL (occurrence: NL)
  Receive Date: 20211119
  Receipt Date: 20211119
  Transmission Date: 20220303
  Serious: Yes (Other)
  Sender: FDA-Public Use
  Company Number: None

PATIENT
  Age: 61 Year
  Sex: Female
  Weight: 130 kg

DRUGS (1)
  1. NITROFURANTOIN [Suspect]
     Active Substance: NITROFURANTOIN
     Indication: Urinary tract infection
     Dosage: 200 MILLIGRAM DAILY; BRAND NAME NOT SPECIFIED
     Route: 065
     Dates: end: 20210927

REACTIONS (5)
  - Pulmonary embolism [Recovering/Resolving]
  - Malaise [Recovered/Resolved]
  - Arthralgia [Recovering/Resolving]
  - Chills [Recovered/Resolved]
  - Fatigue [Recovering/Resolving]

NARRATIVE: CASE EVENT DATE: 20210730
